FAERS Safety Report 14008796 (Version 1)
Quarter: 2017Q3

REPORT INFORMATION
  Report Type: Report from Study
  Country: FI (occurrence: FI)
  Receive Date: 20170925
  Receipt Date: 20170925
  Transmission Date: 20171128
  Serious: Yes (Other)
  Sender: FDA-Public Use
  Company Number: FI-B.I. PHARMACEUTICALS,INC./RIDGEFIELD-2017-BI-032416

PATIENT
  Age: 76 Year
  Sex: Female
  Weight: 54 kg

DRUGS (14)
  1. VITAMIN C [Concomitant]
     Active Substance: ASCORBIC ACID
     Indication: VITAMIN SUPPLEMENTATION
     Route: 048
     Dates: start: 20170314
  2. AQUALAN L [Concomitant]
     Indication: DRY SKIN
     Route: 061
     Dates: start: 20170314
  3. PARACETAMOL [Concomitant]
     Active Substance: ACETAMINOPHEN
     Indication: PAIN
     Route: 048
     Dates: start: 20170314
  4. BIOTIN [Concomitant]
     Active Substance: BIOTIN
     Indication: VITAMIN SUPPLEMENTATION
     Dosage: UNIT DOSE AND DAILY DOSE: 1 X 1
     Route: 048
     Dates: start: 20170314
  5. OMEGA 3 [Concomitant]
     Active Substance: OMEGA-3 FATTY ACIDS
     Indication: VITAMIN SUPPLEMENTATION
     Dosage: UNIT DOSE AND DAILY DOSE: 1X1
     Route: 048
     Dates: start: 20170314
  6. BURANA [Concomitant]
     Active Substance: IBUPROFEN
     Indication: PAIN
     Route: 048
     Dates: start: 20170314
  7. VITAMIN B12 [Concomitant]
     Active Substance: CYANOCOBALAMIN
     Indication: VITAMIN SUPPLEMENTATION
     Route: 048
     Dates: start: 20170314
  8. GEFILUS [Concomitant]
     Indication: BLOOD LACTIC ACID ABNORMAL
     Dosage: UNIT DOSE AND DAILY DOSE: 1X1
     Route: 048
     Dates: start: 20170314
  9. CALCIUM D3 [Concomitant]
     Active Substance: CALCIUM\CHOLECALCIFEROL
     Indication: VITAMIN SUPPLEMENTATION
     Dosage: UNIT DOSE AND DAILY DOSE: 500/10 MG
     Route: 048
     Dates: start: 20170314
  10. SAMARIN [Concomitant]
     Indication: DYSPEPSIA
     Route: 048
     Dates: start: 20170412
  11. NINTEDANIB [Suspect]
     Active Substance: NINTEDANIB
     Indication: IDIOPATHIC PULMONARY FIBROSIS
     Route: 065
     Dates: start: 20170314
  12. NEXIUM [Concomitant]
     Active Substance: ESOMEPRAZOLE MAGNESIUM
     Indication: DYSPEPSIA
     Route: 048
     Dates: start: 20170314
  13. DORZOLAMIDE ACTAVIS [Concomitant]
     Indication: GLAUCOMA
     Dosage: UNIT DOSE AND DAILY DOSE: 1GTTX2
     Route: 050
     Dates: start: 20160927, end: 20170601
  14. AIROMIR [Concomitant]
     Active Substance: ALBUTEROL SULFATE
     Indication: DYSPNOEA
     Route: 055
     Dates: start: 20170228

REACTIONS (1)
  - Glaucoma [Not Recovered/Not Resolved]

NARRATIVE: CASE EVENT DATE: 20170601
